FAERS Safety Report 15913822 (Version 1)
Quarter: 2019Q1

REPORT INFORMATION
  Report Type: Spontaneous
  Country: US (occurrence: US)
  Receive Date: 20190111
  Receipt Date: 20190111
  Transmission Date: 20190417
  Serious: No
  Sender: FDA-Public Use
  Company Number: None

PATIENT
  Sex: Female

DRUGS (1)
  1. TACROLIMUS 1MG ACCORD HEALTHCARE [Suspect]
     Active Substance: TACROLIMUS
     Indication: EOSINOPHILIC OESOPHAGITIS
     Route: 048
     Dates: start: 201710, end: 201901

REACTIONS (2)
  - Herpes zoster [None]
  - Facial paralysis [None]
